FAERS Safety Report 15267307 (Version 1)
Quarter: 2018Q3

REPORT INFORMATION
  Report Type: Spontaneous
  Country: US (occurrence: US)
  Receive Date: 20180724
  Receipt Date: 20180724
  Transmission Date: 20181010
  Serious: Yes (Disabling)
  Sender: FDA-Public Use
  Company Number: None

PATIENT
  Age: 64 Year
  Sex: Male

DRUGS (2)
  1. PRESERVISION VITAMINS [Concomitant]
  2. EYLEA [Suspect]
     Active Substance: AFLIBERCEPT

REACTIONS (6)
  - Eye pain [None]
  - Blindness [None]
  - Eye swelling [None]
  - Vitreous floaters [None]
  - Ocular hyperaemia [None]
  - Vitreous disorder [None]

NARRATIVE: CASE EVENT DATE: 20180716
